FAERS Safety Report 18552345 (Version 1)
Quarter: 2020Q4

REPORT INFORMATION
  Report Type: Spontaneous
  Country: US (occurrence: US)
  Receive Date: 20201127
  Receipt Date: 20201127
  Transmission Date: 20210114
  Serious: Yes (Hospitalization, Other)
  Sender: FDA-Public Use
  Company Number: US-BRISTOL-MYERS SQUIBB COMPANY-BMS-2020-099451

PATIENT
  Age: 63 Year
  Sex: Male

DRUGS (2)
  1. NIVOLUMAB [Suspect]
     Active Substance: NIVOLUMAB
     Indication: SQUAMOUS CELL CARCINOMA OF LUNG
     Dosage: 240 MILLIGRAM, Q2WK
     Route: 065
  2. VINORELBINE [Concomitant]
     Active Substance: VINORELBINE TARTRATE
     Indication: SQUAMOUS CELL CARCINOMA OF LUNG
     Dosage: RECEIVED 2 TOTAL DOSES
     Route: 065

REACTIONS (2)
  - Immune-mediated pneumonitis [Unknown]
  - Acute respiratory failure [Unknown]
